FAERS Safety Report 8966998 (Version 1)
Quarter: 2012Q4

REPORT INFORMATION
  Report Type: Report from Study
  Country: AU (occurrence: AU)
  Receive Date: 20121217
  Receipt Date: 20121217
  Transmission Date: 20130627
  Serious: Yes (Hospitalization)
  Sender: FDA-Public Use
  Company Number: AU-ELI_LILLY_AND_COMPANY-AU201212001936

PATIENT
  Age: 62 Year
  Sex: Male
  Weight: 82.5 kg

DRUGS (15)
  1. GEMCITABINE HYDROCHLORIDE [Suspect]
     Indication: NON-SMALL CELL LUNG CANCER
     Dosage: UNK
     Dates: start: 20070416
  2. CARBOPLATIN [Suspect]
     Indication: NON-SMALL CELL LUNG CANCER
     Dosage: UNK
     Dates: start: 20070416
  3. BEVACIZUMAB [Suspect]
     Indication: NON-SMALL CELL LUNG CANCER
     Dosage: 1245 mg, once every three weeks
     Route: 042
     Dates: start: 20070416, end: 20070514
  4. BEVACIZUMAB [Suspect]
     Dosage: 1245 mg, once every three weeks
     Route: 042
     Dates: start: 20070528
  5. DEXAMETHASONE [Concomitant]
     Dosage: 2 mg, qd
  6. HALOPERIDOL [Concomitant]
     Dosage: 1 mg, qd
  7. ZOCOR [Concomitant]
     Dosage: 40 mg, qd
  8. AVAPRO [Concomitant]
     Dosage: 150 mg, qd
  9. PANADOL [Concomitant]
     Dosage: 4 g, qd
  10. PANTOPRAZOLE [Concomitant]
     Dosage: 40 mg, qd
  11. KAPANOL [Concomitant]
     Dosage: 300 mg, qd
  12. THYROXINE [Concomitant]
     Dosage: 100 ug, qd
  13. ZOLOFT [Concomitant]
     Dosage: 75 mg, qd
  14. MOVICOL [Concomitant]
     Dosage: 100 ug, qd
  15. DOCUSATE SODIUM W/SENNOSIDE A+B [Concomitant]
     Dosage: UNK

REACTIONS (3)
  - Haemorrhoids [Recovered/Resolved]
  - Thrombocytopenia [Recovered/Resolved]
  - Infection [Recovered/Resolved]
